FAERS Safety Report 4629363-9 (Version None)
Quarter: 2005Q2

REPORT INFORMATION
  Report Type: 
  Country: None (occurrence: None)
  Receive Date: 20050405
  Receipt Date: 20050323
  Transmission Date: 20051028
  Serious: Yes (Hospitalization)
  Sender: FDA-Public Use
  Company Number: 430004E05GBR

PATIENT
  Age: 43 Year
  Sex: Female

DRUGS (2)
  1. NOVANTRONE [Suspect]
     Indication: LYMPHOMA
     Dosage: 6 CYCLE
  2. OTHER HAEMATOLOGICAL [Suspect]
     Indication: LYMPHOMA

REACTIONS (4)
  - CHILLS [None]
  - LOWER RESPIRATORY TRACT INFECTION [None]
  - MALAISE [None]
  - NEUTROPENIA [None]
